FAERS Safety Report 9390923 (Version 3)
Quarter: 2014Q1

REPORT INFORMATION
  Report Type: Spontaneous
  Country: US (occurrence: US)
  Receive Date: 20130709
  Receipt Date: 20140205
  Transmission Date: 20141002
  Serious: No
  Sender: FDA-Public Use
  Company Number: US-PFIZER INC-2013199977

PATIENT
  Age: 49 Year
  Sex: Female
  Weight: 71.2 kg

DRUGS (6)
  1. PREMARIN [Suspect]
     Indication: POSTPARTUM HYPOPITUITARISM
     Dosage: 0.625 MG, DAILY
     Route: 048
     Dates: end: 2013
  2. CORTONE [Suspect]
     Indication: POSTPARTUM HYPOPITUITARISM
     Dosage: 25 MG, DAILY
     Route: 048
     Dates: start: 20121228
  3. SYNTHROID [Suspect]
     Indication: POSTPARTUM HYPOPITUITARISM
     Dosage: 137 UG, DAILY
     Route: 048
     Dates: start: 20121228
  4. PERCOCET [Concomitant]
     Indication: PAIN
     Dosage: 10-325 MG PER TABLET, EVERY 6 HOURS AS NEEDED
     Route: 048
     Dates: start: 20130212
  5. SOMA [Concomitant]
     Dosage: 350 MG, EVERY 8 HOURS
     Route: 048
     Dates: start: 20121210
  6. LIDODERM [Concomitant]
     Dosage: 1 PATCH ONTO THE SKIN EVERY 12 HOURS
     Route: 062
     Dates: start: 20120518

REACTIONS (5)
  - Affect lability [Not Recovered/Not Resolved]
  - Hormone level abnormal [Not Recovered/Not Resolved]
  - Arthralgia [Not Recovered/Not Resolved]
  - Fatigue [Not Recovered/Not Resolved]
  - Activities of daily living impaired [Not Recovered/Not Resolved]
